FAERS Safety Report 22585677 (Version 1)
Quarter: 2023Q2

REPORT INFORMATION
  Report Type: Spontaneous
  Country: IT (occurrence: IT)
  Receive Date: 20230610
  Receipt Date: 20230610
  Transmission Date: 20230722
  Serious: Yes (Other)
  Sender: FDA-Public Use
  Company Number: None

PATIENT
  Age: 24 Year
  Sex: Female

DRUGS (1)
  1. TEGRETOL [Suspect]
     Active Substance: CARBAMAZEPINE
     Indication: Drug abuse
     Dosage: 2 G (IL PAZIENTE HA ASSUNTO 10 COMPRESSE TOTALI DI TEGRETOL DA 200 MG)
     Route: 048
     Dates: start: 20230413, end: 20230413

REACTIONS (3)
  - Drug abuse [Recovering/Resolving]
  - Vertigo [Recovering/Resolving]
  - Abdominal pain upper [Recovering/Resolving]

NARRATIVE: CASE EVENT DATE: 20230413
